FAERS Safety Report 12727019 (Version 1)
Quarter: 2016Q3

REPORT INFORMATION
  Report Type: Spontaneous
  Country: US (occurrence: US)
  Receive Date: 20160909
  Receipt Date: 20160909
  Transmission Date: 20161109
  Serious: Yes (Hospitalization)
  Sender: FDA-Public Use
  Company Number: US-JNJCP-30000352429

PATIENT
  Sex: Female
  Weight: 64 kg

DRUGS (1)
  1. NEUTROGENA RAPID CLEAR STUBBORN DAILY LEAVE ON MASK [Suspect]
     Active Substance: BENZOYL PEROXIDE
     Indication: ACNE
     Dosage: DIME SIZE AMOUNT TWICE WEEKLY
     Route: 061

REACTIONS (3)
  - Urticaria [Not Recovered/Not Resolved]
  - Application site rash [Not Recovered/Not Resolved]
  - Application site swelling [Not Recovered/Not Resolved]
